FAERS Safety Report 10097973 (Version 3)
Quarter: 2014Q2

REPORT INFORMATION
  Report Type: Spontaneous
  Country: MX (occurrence: MX)
  Receive Date: 20140423
  Receipt Date: 20140505
  Transmission Date: 20141212
  Serious: Yes (Death)
  Sender: FDA-Public Use
  Company Number: MX-BRISTOL-MYERS SQUIBB COMPANY-20637393

PATIENT
  Age: 85 Year
  Sex: Male
  Weight: 66 kg

DRUGS (1)
  1. KOMBIGLYZE XR [Suspect]
     Indication: DIABETES MELLITUS
     Dosage: LAST DOSE ON 08APR14.
     Route: 048
     Dates: start: 20131209, end: 20140408

REACTIONS (1)
  - Cardiac arrest [Fatal]
